FAERS Safety Report 11450961 (Version 1)
Quarter: 2015Q3

REPORT INFORMATION
  Report Type: Spontaneous
  Country: US (occurrence: US)
  Receive Date: 20150903
  Receipt Date: 20150903
  Transmission Date: 20151125
  Serious: No
  Sender: FDA-Public Use
  Company Number: US-ROCHE-1056203

PATIENT
  Age: 61 Year
  Sex: Male

DRUGS (4)
  1. RIBAVIRIN. [Suspect]
     Active Substance: RIBAVIRIN
     Route: 065
     Dates: start: 20120210
  2. RIBAVIRIN. [Suspect]
     Active Substance: RIBAVIRIN
     Indication: HEPATITIS C
     Route: 065
     Dates: start: 20120210
  3. PEG-INTERFERON ALFA 2A [Suspect]
     Active Substance: PEGINTERFERON ALFA-2A
     Indication: HEPATITIS C
     Route: 058
     Dates: start: 20120210
  4. INCIVEK [Suspect]
     Active Substance: TELAPREVIR
     Indication: HEPATITIS C
     Route: 065
     Dates: start: 20120210

REACTIONS (9)
  - Vitreous floaters [Unknown]
  - White blood cell count decreased [Unknown]
  - Retinal tear [Unknown]
  - Visual impairment [Unknown]
  - Retinal haemorrhage [Unknown]
  - Retinal haemorrhage [Unknown]
  - Neutrophil count increased [Unknown]
  - Headache [Unknown]
  - Anaemia [Unknown]

NARRATIVE: CASE EVENT DATE: 20120402
